FAERS Safety Report 22272648 (Version 1)
Quarter: 2023Q2

REPORT INFORMATION
  Report Type: Report from Study
  Country: CA (occurrence: CA)
  Receive Date: 20230502
  Receipt Date: 20230502
  Transmission Date: 20230721
  Serious: Yes (Other)
  Sender: FDA-Public Use
  Company Number: CA-CELLTRION INC.-2023CA009193

PATIENT

DRUGS (1)
  1. TRUXIMA [Suspect]
     Active Substance: RITUXIMAB-ABBS
     Indication: Immunoglobulin G4 related disease
     Dosage: 1 G, EVERY 2 WEEKS X 2 DOSES
     Route: 042

REACTIONS (2)
  - Immunoglobulin G4 related disease [Unknown]
  - Off label use [Unknown]

NARRATIVE: CASE EVENT DATE: 20230418
